FAERS Safety Report 10667106 (Version 1)
Quarter: 2014Q4

REPORT INFORMATION
  Report Type: Report from Study
  Country: FR (occurrence: FR)
  Receive Date: 20141222
  Receipt Date: 20141222
  Transmission Date: 20150529
  Serious: Yes (Other)
  Sender: FDA-Public Use
  Company Number: FR-UCBSA-2014021926

PATIENT
  Sex: Female
  Weight: 65 kg

DRUGS (5)
  1. AMOXICILLINE [Concomitant]
     Active Substance: AMOXICILLIN
     Indication: NASOPHARYNGITIS
     Dosage: 1 G, 3X/DAY (TID)
     Route: 048
     Dates: end: 20140622
  2. UVEDOSE [Concomitant]
     Active Substance: CHOLECALCIFEROL
     Indication: OSTEOPOROSIS
     Dosage: 100000 IU, EV 2 MONTHS
     Dates: start: 20121212
  3. CERTOLIZUMAB PEGOL RA [Suspect]
     Active Substance: CERTOLIZUMAB PEGOL
     Indication: RHEUMATOID ARTHRITIS
     Dosage: 200 MG, EV 2 WEEKS(QOW)
     Route: 058
     Dates: start: 20130419, end: 20140625
  4. APROVEL [Concomitant]
     Active Substance: IRBESARTAN
     Indication: HYPERTENSION
     Dosage: 150 MG DAILY
     Route: 048
  5. NABUCOX [Concomitant]
     Active Substance: NABUMETONE
     Indication: RHEUMATOID ARTHRITIS
     Dosage: 1 G, UNK
     Route: 048
     Dates: start: 20131217, end: 20140625

REACTIONS (2)
  - Adverse event [Unknown]
  - Dermatitis allergic [Recovered/Resolved]

NARRATIVE: CASE EVENT DATE: 20140616
